FAERS Safety Report 9303116 (Version 1)
Quarter: 2013Q2

REPORT INFORMATION
  Report Type: Spontaneous
  Country: US (occurrence: None)
  Receive Date: 20130521
  Receipt Date: 20130521
  Transmission Date: 20140414
  Serious: Yes (Death)
  Sender: FDA-Public Use
  Company Number: None

PATIENT
  Age: 45 Year
  Sex: Male
  Weight: 99.79 kg

DRUGS (1)
  1. PERCOCET [Suspect]
     Indication: PROCEDURAL PAIN
     Dosage: PERCOSET 7.5MG/325MG 2 PILLS EVERY 4 HOURS MOUTH
     Route: 048
     Dates: start: 20050914, end: 20050915

REACTIONS (1)
  - Death [None]
